FAERS Safety Report 6588103-7 (Version None)
Quarter: 2010Q1

REPORT INFORMATION
  Report Type: 
  Country: None (occurrence: None)
  Receive Date: 20100218
  Receipt Date: 20100211
  Transmission Date: 20100710
  Serious: Yes (Hospitalization)
  Sender: FDA-Public Use
  Company Number: PHHO2007BE18831

PATIENT
  Sex: Female
  Weight: 57.8 kg

DRUGS (1)
  1. AMN107 AMN+CAP [Suspect]
     Indication: CHRONIC MYELOID LEUKAEMIA
     Dosage: 800 MG, UNK
     Route: 048
     Dates: start: 20070926

REACTIONS (3)
  - FEBRILE NEUTROPENIA [None]
  - PERIODONTITIS [None]
  - TOOTH ABSCESS [None]
